FAERS Safety Report 17831092 (Version 3)
Quarter: 2020Q3

REPORT INFORMATION
  Report Type: Report from Study
  Country: CZ (occurrence: CZ)
  Receive Date: 20200527
  Receipt Date: 20200707
  Transmission Date: 20201103
  Serious: Yes (Disabling, Other)
  Sender: FDA-Public Use
  Company Number: CZ-JNJFOC-20200517487

PATIENT
  Age: 64 Year
  Sex: Male

DRUGS (1)
  1. REMICADE [Suspect]
     Active Substance: INFLIXIMAB
     Indication: ANKYLOSING SPONDYLITIS
     Dosage: 5MG/KG
     Route: 042
     Dates: start: 20180927, end: 20200507

REACTIONS (1)
  - Intraocular melanoma [Recovering/Resolving]

NARRATIVE: CASE EVENT DATE: 20200513
